FAERS Safety Report 6684668-5 (Version None)
Quarter: 2010Q2

REPORT INFORMATION
  Report Type: 
  Country: None (occurrence: None)
  Receive Date: 20100416
  Receipt Date: 20100409
  Transmission Date: 20101027
  Serious: Yes (Other)
  Sender: FDA-Public Use
  Company Number: JP-ALLERGAN-1004798US

PATIENT
  Age: 6 Year
  Sex: Female

DRUGS (3)
  1. ALESION SYRUP [Suspect]
     Indication: RHINITIS ALLERGIC
     Dosage: 0.6 G, QD
     Route: 048
  2. MUCODYNE [Suspect]
     Indication: DRUG USE FOR UNKNOWN INDICATION
     Route: 048
  3. TRANSAMIN [Suspect]
     Indication: COUGH
     Route: 048

REACTIONS (2)
  - HALLUCINATION, AUDITORY [None]
  - MIDDLE INSOMNIA [None]
